FAERS Safety Report 8197375-7 (Version None)
Quarter: 2012Q1

REPORT INFORMATION
  Report Type: 
  Country: None (occurrence: None)
  Receive Date: 20120309
  Receipt Date: 20120216
  Transmission Date: 20120608
  Serious: No
  Sender: FDA-Public Use
  Company Number: US-BAYER-2012-018488

PATIENT

DRUGS (2)
  1. PROCARDIA XL [Suspect]
  2. NIFEDIPINE [Suspect]

REACTIONS (1)
  - FLUID RETENTION [None]
